FAERS Safety Report 6017811-1 (Version None)
Quarter: 2008Q4

REPORT INFORMATION
  Report Type: 
  Country: None (occurrence: None)
  Receive Date: 20081223
  Receipt Date: 20081211
  Transmission Date: 20090506
  Serious: Yes (Hospitalization, Other)
  Sender: FDA-Public Use
  Company Number: US-ROCHE-597692

PATIENT
  Sex: Female
  Weight: 51.7 kg

DRUGS (2)
  1. CAPECITABINE [Suspect]
     Indication: COLORECTAL CANCER
     Route: 048
  2. CAPECITABINE [Suspect]
     Dosage: DOSE: 500 MG 3 DOSE FORM DAILY
     Route: 048
     Dates: start: 20080903

REACTIONS (2)
  - COLON CANCER METASTATIC [None]
  - HOSPITALISATION [None]
